FAERS Safety Report 4830156-8 (Version None)
Quarter: 2005Q4

REPORT INFORMATION
  Report Type: 
  Country: None (occurrence: None)
  Receive Date: 20051117
  Receipt Date: 20050810
  Transmission Date: 20060501
  Serious: Yes (Hospitalization)
  Sender: FDA-Public Use
  Company Number: US-MERCK-0508USA01980

PATIENT
  Age: 69 Year
  Sex: Male
  Weight: 82 kg

DRUGS (13)
  1. ZANTAC [Concomitant]
     Route: 065
  2. COMBIVENT [Concomitant]
     Route: 055
  3. HUMIRA [Concomitant]
     Route: 065
     Dates: start: 20030301, end: 20030601
  4. VIOXX [Suspect]
     Indication: ARTHRALGIA
     Route: 048
     Dates: start: 20030705, end: 20041006
  5. VIOXX [Suspect]
     Indication: RHEUMATOID ARTHRITIS
     Route: 048
     Dates: start: 20030705, end: 20041006
  6. CELEBREX [Suspect]
     Indication: ARTHRITIS
     Route: 065
     Dates: start: 19991001
  7. PLAQUENIL [Concomitant]
     Indication: ARTHRITIS
     Route: 065
     Dates: start: 20000101
  8. FELDENE [Concomitant]
     Indication: ARTHRITIS
     Route: 065
     Dates: start: 20000101, end: 20030901
  9. AZULFIDINE [Concomitant]
     Indication: ARTHRITIS
     Route: 065
     Dates: start: 20000101, end: 20030101
  10. SULFAZIN [Concomitant]
     Indication: ULCER
     Route: 065
     Dates: start: 20030801, end: 20031001
  11. CYTOTEC [Concomitant]
     Indication: ULCER
     Route: 065
     Dates: start: 20000101, end: 20031001
  12. RANITIDINE-BC [Concomitant]
     Route: 065
  13. FORADIL [Concomitant]
     Route: 065

REACTIONS (9)
  - ABDOMINAL PAIN [None]
  - CARDIAC FAILURE CONGESTIVE [None]
  - CARDIOMEGALY [None]
  - INTERSTITIAL LUNG DISEASE [None]
  - MYOCARDIAL INFARCTION [None]
  - OEDEMA PERIPHERAL [None]
  - PLEURAL EFFUSION [None]
  - PNEUMONIA [None]
  - TRACHEOBRONCHITIS [None]
